FAERS Safety Report 10266152 (Version 1)
Quarter: 2014Q2

REPORT INFORMATION
  Report Type: Spontaneous
  Country: US (occurrence: US)
  Receive Date: 20140627
  Receipt Date: 20140627
  Transmission Date: 20141212
  Serious: Yes (Hospitalization)
  Sender: FDA-Public Use
  Company Number: US-B.I. PHARMACEUTICALS,INC./RIDGEFIELD-2014-BI-28896BP

PATIENT
  Age: 67 Year
  Sex: Male
  Weight: 76 kg

DRUGS (10)
  1. COMBIVENT [Suspect]
     Indication: CHRONIC OBSTRUCTIVE PULMONARY DISEASE
     Dosage: STRENGTH: 18 MCG / 103 MCG; DAILY DOSE: 144 MCG/ 824 MCG
     Route: 055
     Dates: end: 2011
  2. LEVOTHYROXINE [Concomitant]
     Indication: HYPOTHYROIDISM
     Dosage: 125 MCG
     Route: 048
     Dates: start: 2002
  3. ATENOLOL [Concomitant]
     Indication: CORONARY ARTERY DISEASE
     Route: 065
     Dates: start: 2002
  4. ATORVASTATIN [Concomitant]
     Indication: BLOOD CHOLESTEROL INCREASED
     Dosage: 40 MG
     Route: 048
  5. CYCLOBENZAPRINE [Concomitant]
     Indication: MUSCLE SPASMS
     Dosage: 30 MG
     Route: 048
  6. HYDROCODONE-ACETAMINOPHEN [Concomitant]
     Indication: ARTHRALGIA
     Dosage: STRENGTH: 5/325 MG; DAILY DOSE: 15/ 975 MG
     Route: 048
     Dates: start: 2012
  7. NITROGLYCERIN [Concomitant]
     Indication: CHEST PAIN
     Route: 050
     Dates: start: 2002
  8. DOCUSATE/SENNOSIDES [Concomitant]
     Indication: CONSTIPATION
     Dosage: STRENGTH: 50/8.6 MG; DAILY DOSE: 100/17.2 MG
     Route: 048
     Dates: start: 201310
  9. FLUTICASONE PROPIONATE [Concomitant]
     Indication: NASAL CONGESTION
     Dosage: 50 MCG
     Route: 045
  10. LOREZEPAM [Concomitant]
     Indication: ANXIETY
     Dosage: 1 MG
     Route: 048
     Dates: start: 2005

REACTIONS (1)
  - Pneumothorax [Recovered/Resolved]
